FAERS Safety Report 5478817-4 (Version None)
Quarter: 2007Q4

REPORT INFORMATION
  Report Type: 
  Country: None (occurrence: None)
  Receive Date: 20071005
  Receipt Date: 20070927
  Transmission Date: 20080405
  Serious: Yes (Other)
  Sender: FDA-Public Use
  Company Number: FR-ABBOTT-07P-056-0418536-00

PATIENT
  Age: 31 Year
  Sex: Female

DRUGS (1)
  1. VALPROATE DE SODIUM WINTHROP LP [Suspect]
     Indication: EPILEPSY
     Route: 048
     Dates: start: 20070101, end: 20070701

REACTIONS (1)
  - THERAPEUTIC RESPONSE UNEXPECTED WITH DRUG SUBSTITUTION [None]
